FAERS Safety Report 7590607-5 (Version None)
Quarter: 2011Q3

REPORT INFORMATION
  Report Type: 
  Country: None (occurrence: None)
  Receive Date: 20110705
  Receipt Date: 20110629
  Transmission Date: 20111222
  Serious: Yes (Other)
  Sender: FDA-Public Use
  Company Number: US-PFIZER INC-2011027564

PATIENT
  Sex: Male
  Weight: 84.354 kg

DRUGS (13)
  1. SUTENT [Suspect]
     Indication: HEPATIC CANCER METASTATIC
     Dosage: 50 MG, DAILY
     Route: 048
     Dates: start: 20110110
  2. CALCITRIOL [Concomitant]
     Dosage: UNK
  3. ATENOLOL [Concomitant]
     Indication: HYPERTENSION
     Dosage: UNK
  4. CLONIDINE [Concomitant]
     Indication: BLOOD PRESSURE
     Dosage: 1 MG, UNK
  5. SYNTHROID [Concomitant]
     Indication: THYROID DISORDER
     Dosage: UNK
  6. AMLODIPINE [Concomitant]
     Indication: BLOOD PRESSURE
     Dosage: 10 MG, AS NEEDED
  7. CLONIDINE [Concomitant]
     Indication: BLOOD PRESSURE SYSTOLIC INCREASED
  8. SIMVASTATIN [Concomitant]
     Indication: BLOOD CHOLESTEROL INCREASED
     Dosage: UNK
  9. AMLODIPINE [Concomitant]
     Indication: BLOOD PRESSURE SYSTOLIC INCREASED
  10. ALLOPURINOL [Concomitant]
     Indication: PAIN IN EXTREMITY
     Dosage: DAILY
  11. CLONIDINE [Suspect]
     Indication: HYPERTENSION
     Dosage: 2 MG, UNK
  12. LANTUS [Concomitant]
     Indication: DIABETES MELLITUS
     Dosage: DAILY
  13. INSULIN GLULISINE [Concomitant]
     Indication: DIABETES MELLITUS
     Dosage: DAILY

REACTIONS (7)
  - FATIGUE [None]
  - GOUT [None]
  - INCORRECT PRODUCT STORAGE [None]
  - STOMATITIS [None]
  - NAUSEA [None]
  - BLOOD CREATININE INCREASED [None]
  - SOMNOLENCE [None]
